FAERS Safety Report 20918715 (Version 1)
Quarter: 2022Q2

REPORT INFORMATION
  Report Type: Spontaneous
  Country: JP (occurrence: JP)
  Receive Date: 20220606
  Receipt Date: 20220606
  Transmission Date: 20220721
  Serious: Yes (Hospitalization)
  Sender: FDA-Public Use
  Company Number: JP-ELI_LILLY_AND_COMPANY-JP202102006235

PATIENT
  Age: 50 Year
  Sex: Male
  Weight: 63 kg

DRUGS (6)
  1. INSULIN GLARGINE [Suspect]
     Active Substance: INSULIN GLARGINE
     Indication: Diabetic ketoacidosis
     Dosage: UNK
     Route: 058
     Dates: start: 20200610, end: 20200617
  2. INSULIN GLARGINE [Suspect]
     Active Substance: INSULIN GLARGINE
     Indication: Pancreatogenous diabetes
  3. HUMALOG [Suspect]
     Active Substance: INSULIN LISPRO
     Indication: Diabetic ketoacidosis
     Dosage: UNK
     Route: 058
     Dates: start: 20200610
  4. HUMALOG [Suspect]
     Active Substance: INSULIN LISPRO
     Indication: Pancreatogenous diabetes
  5. DIAZEPAM TOWA [Concomitant]
     Dosage: UNK
     Route: 048
     Dates: start: 20200609, end: 20200617
  6. RISPERIDONE [Concomitant]
     Active Substance: RISPERIDONE
     Dosage: UNK
     Route: 048
     Dates: start: 20200609, end: 20200612

REACTIONS (1)
  - Oedema [Recovered/Resolved]

NARRATIVE: CASE EVENT DATE: 20200611
